FAERS Safety Report 9123540 (Version 1)
Quarter: 2013Q1

REPORT INFORMATION
  Report Type: Spontaneous
  Country: US (occurrence: US)
  Receive Date: 20130115
  Receipt Date: 20130115
  Transmission Date: 20140127
  Serious: No
  Sender: FDA-Public Use
  Company Number: US-BAYER-2013-001315

PATIENT
  Age: 60 Year
  Sex: Male

DRUGS (7)
  1. CIPRO [Suspect]
  2. CITALOPRAM HYDROBROMIDE [Concomitant]
     Indication: DEPRESSION
     Dosage: 1 DF, QD
     Route: 048
     Dates: start: 20121212
  3. NEURONTIN [Concomitant]
     Indication: PAIN
     Dosage: 1 DF, QID
     Route: 048
     Dates: start: 20121220
  4. ULTRAM [Concomitant]
     Indication: PAIN
     Dosage: 1 - 2 TABLETS THREE TIMES DAILY AS NEEDED
     Route: 048
  5. FLUTICASONE PROPIONATE [Concomitant]
     Indication: SINUSITIS
     Dosage: 50MCG/ACT, 2 (TWO) SPRAY(S) EACH NOSTRIL DAILY
     Route: 045
     Dates: start: 20121212
  6. PROVENTIL HFA [Concomitant]
     Dosage: 108 (90 BASE) MCG/ACT, 1-2 PUFFS EVERY 4 HOURS AS NEEDED
     Dates: start: 20121213
  7. NASONEX [Concomitant]
     Indication: SINUSITIS
     Dosage: 50MCG/ACT, 2 (TWO) SPRAY(S) EACH NOSTRIL ONCE DAILU
     Route: 045
     Dates: start: 20121213

REACTIONS (1)
  - Drug hypersensitivity [None]
